FAERS Safety Report 14081328 (Version 3)
Quarter: 2019Q2

REPORT INFORMATION
  Report Type: Report from Study
  Country: US (occurrence: US)
  Receive Date: 20171012
  Receipt Date: 20190628
  Transmission Date: 20190711
  Serious: Yes (Death, Hospitalization)
  Sender: FDA-Public Use
  Company Number: US-ACTELION-A-US2017-156636

PATIENT
  Age: 59 Year
  Sex: Female
  Weight: 70.3 kg

DRUGS (8)
  1. OPSUMIT [Suspect]
     Active Substance: MACITENTAN
     Indication: PULMONARY HYPERTENSION
     Dosage: 10 MG, QD
     Route: 048
     Dates: start: 20160415
  2. HYDROXYCHLOROQUINE [Concomitant]
     Active Substance: HYDROXYCHLOROQUINE
     Dosage: UNK
     Dates: start: 2016
  3. ADEMPAS [Concomitant]
     Active Substance: RIOCIGUAT
  4. CEFAZOLIN [Concomitant]
     Active Substance: CEFAZOLIN
     Dosage: UNK
     Dates: start: 20170511
  5. CELLCEPT [Concomitant]
     Active Substance: MYCOPHENOLATE MOFETIL\MYCOPHENOLATE MOFETIL HYDROCHLORIDE
     Dosage: UNK
     Dates: start: 20160923
  6. VELETRI [Suspect]
     Active Substance: EPOPROSTENOL
     Dosage: UNK
     Route: 042
  7. HEPARIN [Concomitant]
     Active Substance: HEPARIN SODIUM
     Dosage: UNK
     Dates: start: 20170511
  8. VELETRI [Suspect]
     Active Substance: EPOPROSTENOL
     Indication: PULMONARY HYPERTENSION
     Dosage: 17 NG/KG, PER MIN
     Route: 042

REACTIONS (13)
  - Confusional state [Unknown]
  - Cardiac arrest [Unknown]
  - Renal failure [Unknown]
  - Death [Fatal]
  - General physical health deterioration [Fatal]
  - Urinary incontinence [Unknown]
  - Acute kidney injury [Unknown]
  - Dyspnoea exertional [Recovered/Resolved]
  - Anal incontinence [Unknown]
  - Panic attack [Unknown]
  - Pulmonary hypertension [Recovered/Resolved]
  - Fatigue [Recovered/Resolved]
  - Diarrhoea [Unknown]

NARRATIVE: CASE EVENT DATE: 20170511
